FAERS Safety Report 9795891 (Version 3)
Quarter: 2014Q2

REPORT INFORMATION
  Report Type: Spontaneous
  Country: US (occurrence: US)
  Receive Date: 20140103
  Receipt Date: 20140612
  Transmission Date: 20141212
  Serious: Yes (Other)
  Sender: FDA-Public Use
  Company Number: US-BAYER-2013-158564

PATIENT
  Age: 35 Year
  Sex: Female

DRUGS (3)
  1. MIRENA [Suspect]
     Indication: CONTRACEPTION
     Dosage: 20 MCG/24HR, CONT
     Route: 015
     Dates: start: 20130326
  2. MIRENA [Suspect]
     Indication: MENORRHAGIA
  3. LEVLEN [Concomitant]
     Dosage: UNK
     Dates: start: 20131114

REACTIONS (7)
  - Device dislocation [None]
  - Genital haemorrhage [None]
  - Menometrorrhagia [None]
  - Dysmenorrhoea [None]
  - Dysfunctional uterine bleeding [None]
  - Cervical polyp [None]
  - Epistaxis [None]
